FAERS Safety Report 6111743-6 (Version None)
Quarter: 2009Q1

REPORT INFORMATION
  Report Type: 
  Country: None (occurrence: None)
  Receive Date: 20090311
  Receipt Date: 20080229
  Transmission Date: 20090719
  Serious: No
  Sender: FDA-Public Use
  Company Number: US-TYCO HEALTHCARE/MALLINCKRODT-T200800371

PATIENT

DRUGS (6)
  1. RESTORIL [Suspect]
     Indication: INSOMNIA
     Dosage: 7.5 MG, QD OR PRN
     Route: 048
     Dates: start: 20080210, end: 20080228
  2. RESTORIL [Suspect]
     Dosage: HIGHER DOSE WHILE HOSPITALIZED
     Dates: start: 20080201, end: 20080201
  3. COUMADIN [Concomitant]
     Indication: CARDIAC DISORDER
     Dosage: 5 MG, QD
     Route: 048
  4. DIGOXIN [Concomitant]
     Indication: CARDIAC DISORDER
     Dosage: .125 MG, QD
     Route: 048
  5. TOPROL-XL [Concomitant]
     Indication: CARDIAC DISORDER
     Dosage: 25 MG, 1/2 TAB, QD
     Route: 048
  6. LOVASTATIN [Concomitant]
     Indication: CARDIAC DISORDER
     Dosage: 10 MG, QD
     Route: 048

REACTIONS (2)
  - DRUG INEFFECTIVE [None]
  - INITIAL INSOMNIA [None]
